FAERS Safety Report 4429257-8 (Version None)
Quarter: 2004Q3

REPORT INFORMATION
  Report Type: 
  Country: None (occurrence: None)
  Receive Date: 20040819
  Receipt Date: 20040810
  Transmission Date: 20050211
  Serious: Yes (Hospitalization)
  Sender: FDA-Public Use
  Company Number: IT-BRISTOL-MYERS SQUIBB COMPANY-12667358

PATIENT
  Age: 70 Year
  Sex: Male

DRUGS (1)
  1. ETOPOSIDE [Suspect]

REACTIONS (4)
  - BRONCHOSPASM [None]
  - HYPOTENSION [None]
  - PLEURAL EFFUSION [None]
  - RESPIRATORY FAILURE [None]
